FAERS Safety Report 11167161 (Version 1)
Quarter: 2015Q2

REPORT INFORMATION
  Report Type: Report from Study
  Country: NL (occurrence: NL)
  Receive Date: 20150605
  Receipt Date: 20150605
  Transmission Date: 20150821
  Serious: Yes (Death, Hospitalization)
  Sender: FDA-Public Use
  Company Number: NL-ROCHE-1573347

PATIENT
  Age: 86 Year
  Sex: Male

DRUGS (8)
  1. RITUXIMAB [Suspect]
     Active Substance: RITUXIMAB
     Dosage: THERAPY CYCLE NO: 5
     Route: 042
     Dates: start: 20091020
  2. PREDNISOLONE. [Suspect]
     Active Substance: PREDNISOLONE
     Indication: MANTLE CELL LYMPHOMA
     Route: 048
     Dates: start: 20090820, end: 20090824
  3. LIPITOR [Concomitant]
     Active Substance: ATORVASTATIN CALCIUM
     Route: 065
     Dates: start: 19991101, end: 20091109
  4. DOXORUBICIN [Suspect]
     Active Substance: DOXORUBICIN
     Indication: MANTLE CELL LYMPHOMA
     Route: 042
     Dates: start: 20090820, end: 20090820
  5. CYCLOPHOSPHAMIDE. [Suspect]
     Active Substance: CYCLOPHOSPHAMIDE
     Indication: MANTLE CELL LYMPHOMA
     Dosage: CYCLE 2
     Route: 042
     Dates: start: 20090820, end: 20090820
  6. VINCRISTINE [Suspect]
     Active Substance: VINCRISTINE
     Indication: MANTLE CELL LYMPHOMA
     Dosage: CYCLE 2
     Route: 042
     Dates: start: 20090820, end: 20090820
  7. NIFEDIPIN [Concomitant]
     Active Substance: NIFEDIPINE
     Route: 065
     Dates: start: 19991101, end: 20091109
  8. RITUXIMAB [Suspect]
     Active Substance: RITUXIMAB
     Indication: MANTLE CELL LYMPHOMA
     Dosage: THERAPY CYCLE NO: 2
     Route: 042

REACTIONS (2)
  - Upper gastrointestinal haemorrhage [Unknown]
  - Pneumonia [Fatal]

NARRATIVE: CASE EVENT DATE: 20090908
